FAERS Safety Report 19031298 (Version 1)
Quarter: 2021Q1

REPORT INFORMATION
  Report Type: Spontaneous
  Country: US (occurrence: US)
  Receive Date: 20210318
  Receipt Date: 20210318
  Transmission Date: 20210420
  Serious: Yes (Hospitalization)
  Sender: FDA-Public Use
  Company Number: None

PATIENT
  Age: 55 Year
  Sex: Male

DRUGS (1)
  1. TESTOSTERONE (TESTOSTERONE 100MG/ML INJ (IN OIL)) [Suspect]
     Active Substance: TESTOSTERONE
     Dosage: ?          OTHER FREQUENCY:OTHER;OTHER ROUTE:IM?
     Dates: start: 20210226, end: 20210226

REACTIONS (6)
  - Swollen tongue [None]
  - Rash [None]
  - Anaphylactic reaction [None]
  - Hypersensitivity [None]
  - Glossodynia [None]
  - Nausea [None]

NARRATIVE: CASE EVENT DATE: 20210226
